FAERS Safety Report 9246525 (Version 2)
Quarter: 2013Q2

REPORT INFORMATION
  Report Type: Spontaneous
  Country: US (occurrence: US)
  Receive Date: 20130422
  Receipt Date: 20130603
  Transmission Date: 20140414
  Serious: Yes (Hospitalization, Other)
  Sender: FDA-Public Use
  Company Number: US-009507513-1304USA009046

PATIENT
  Sex: Female
  Weight: 98.41 kg

DRUGS (2)
  1. NUVARING [Suspect]
     Indication: CONTRACEPTION
     Dosage: UNK
     Dates: start: 2007, end: 20110501
  2. VITAMINS (UNSPECIFIED) [Suspect]
     Dosage: UNK
     Dates: start: 201101, end: 201203

REACTIONS (4)
  - Pulmonary embolism [Unknown]
  - Phlebitis [Unknown]
  - Maternal exposure before pregnancy [Unknown]
  - Abdominal pain upper [Unknown]
